FAERS Safety Report 5366621-7 (Version None)
Quarter: 2007Q2

REPORT INFORMATION
  Report Type: 
  Country: None (occurrence: None)
  Receive Date: 20070622
  Receipt Date: 20070613
  Transmission Date: 20071010
  Serious: Yes (Death)
  Sender: FDA-Public Use
  Company Number: SE-NOVOPROD-262405

PATIENT
  Age: 88 Year
  Sex: Male
  Weight: 87 kg

DRUGS (6)
  1. NORDITROPIN [Suspect]
     Dosage: .2 MG, QD
     Dates: start: 20000217, end: 20060130
  2. HYDROCORTISON                      /00028601/ [Concomitant]
     Dosage: 15 MG, QD
     Route: 048
     Dates: start: 19980801
  3. TESTOVIRON                         /00103101/ [Concomitant]
     Dosage: 250 MG, (EVERY 3 WEEKS - INJECTION)
     Dates: start: 19980801
  4. TENORMIN [Concomitant]
     Dosage: 50 MG, QD
     Route: 048
     Dates: start: 19981201
  5. TROMBYL [Concomitant]
     Dosage: 75 MG, UNK
     Route: 048
     Dates: start: 19980112
  6. BEHEPAN [Concomitant]
     Dosage: 1 MG, QD
     Route: 048
     Dates: start: 19600101

REACTIONS (1)
  - MYOCARDIAL ISCHAEMIA [None]
